FAERS Safety Report 21265040 (Version 1)
Quarter: 2022Q3

REPORT INFORMATION
  Report Type: Spontaneous
  Country: FR (occurrence: FR)
  Receive Date: 20220829
  Receipt Date: 20220829
  Transmission Date: 20221026
  Serious: Yes (Hospitalization)
  Sender: FDA-Public Use
  Company Number: None

PATIENT
  Age: 46 Year
  Sex: Male
  Weight: 103 kg

DRUGS (3)
  1. ENALAPRIL MALEATE [Suspect]
     Active Substance: ENALAPRIL MALEATE
     Indication: Hypertension
     Dosage: 20 MILLIGRAM DAILY; 20 MG 1 TAB/D 1-0-0 ,  DURATION : 3 DAYS
     Route: 065
     Dates: start: 20220805, end: 20220807
  2. CEFTRIAXONE [Suspect]
     Active Substance: CEFTRIAXONE
     Indication: Product used for unknown indication
     Dosage: 1 SINGLE INJECTION ON 03/08/22 IN THE EVENING IN THE EMERGENCY ROOM , UNIT DOSE : 1 GRAM ,  DURATION
     Route: 065
     Dates: start: 20220803, end: 20220803
  3. METRONIDAZOLE [Suspect]
     Active Substance: METRONIDAZOLE
     Indication: Product used for unknown indication
     Dosage: 1 SINGLE INJECTION IN THE EVENING IN THE EMERGENCY ROOM ,UNIT DOSE : 500MG ,  DURATION  : 1 DAY
     Dates: start: 20220803

REACTIONS (1)
  - Pancreatitis acute [Recovering/Resolving]

NARRATIVE: CASE EVENT DATE: 20220808
